FAERS Safety Report 24235582 (Version 2)
Quarter: 2024Q4

REPORT INFORMATION
  Report Type: Report from Study
  Country: US (occurrence: US)
  Receive Date: 20240822
  Receipt Date: 20241108
  Transmission Date: 20250115
  Serious: Yes (Hospitalization, Other)
  Sender: ABBVIE
  Company Number: US-ABBVIE-5504910

PATIENT
  Sex: Female
  Weight: 68 kg

DRUGS (1)
  1. LO LOESTRIN FE [Suspect]
     Active Substance: ETHINYL ESTRADIOL\NORETHINDRONE ACETATE
     Indication: Contraception
     Route: 048
     Dates: start: 2014, end: 2020

REACTIONS (5)
  - Premature baby [Not Recovered/Not Resolved]
  - Maternal exposure during pregnancy [Unknown]
  - Pulmonary thrombosis [Recovered/Resolved]
  - Caesarean section [Unknown]
  - Epidural anaesthesia [Unknown]

NARRATIVE: CASE EVENT DATE: 20230701
